FAERS Safety Report 20296615 (Version 1)
Quarter: 2022Q1

REPORT INFORMATION
  Report Type: Spontaneous
  Country: SA (occurrence: SA)
  Receive Date: 20220105
  Receipt Date: 20220105
  Transmission Date: 20220423
  Serious: Yes (Other)
  Sender: FDA-Public Use
  Company Number: SA-CELLTRION INC.-2021SA017900

PATIENT

DRUGS (1)
  1. INFLIXIMAB [Suspect]
     Active Substance: INFLIXIMAB
     Indication: Crohn^s disease
     Dosage: 5 MG/KG, MONTHLY
     Route: 042

REACTIONS (4)
  - Cardiac failure acute [Unknown]
  - Congestive cardiomyopathy [Unknown]
  - Crohn^s disease [Unknown]
  - Off label use [Unknown]
